FAERS Safety Report 4506368-X (Version None)
Quarter: 2004Q4

REPORT INFORMATION
  Report Type: 
  Country: None (occurrence: None)
  Receive Date: 20041025
  Receipt Date: 20031113
  Transmission Date: 20050328
  Serious: Yes (Other)
  Sender: FDA-Public Use
  Company Number: US-JNJFOC-20030604186

PATIENT
  Age: 71 Year
  Sex: Female
  Weight: 48.7163 kg

DRUGS (4)
  1. REMICADE [Suspect]
     Indication: CROHN'S DISEASE
     Dosage: , 1 IN 1 TOTAL, INTRAVENOUS
     Route: 042
     Dates: start: 20000701
  2. REMICADE [Suspect]
     Indication: CROHN'S DISEASE
     Dosage: , 1 IN 1 TOTAL, INTRAVENOUS
     Route: 042
     Dates: start: 20030314
  3. REMICADE [Suspect]
     Indication: CROHN'S DISEASE
     Dosage: , 1 IN 1 TOTAL, INTRAVENOUS
     Route: 042
     Dates: start: 20030523
  4. PREDNISONE [Concomitant]

REACTIONS (7)
  - ARTHRALGIA [None]
  - COUGH [None]
  - DYSPNOEA [None]
  - FATIGUE [None]
  - FLUSHING [None]
  - INFUSION RELATED REACTION [None]
  - MYALGIA [None]
